FAERS Safety Report 6081200-4 (Version None)
Quarter: 2009Q1

REPORT INFORMATION
  Report Type: 
  Country: None (occurrence: None)
  Receive Date: 20090213
  Receipt Date: 20090202
  Transmission Date: 20090719
  Serious: Yes (Other)
  Sender: FDA-Public Use
  Company Number: 2009-190742-NL

PATIENT
  Age: 18 Year
  Sex: Female
  Weight: 109 kg

DRUGS (1)
  1. IMPLANON [Suspect]
     Indication: CONTRACEPTION
     Dosage: NI SUBDERMAL
     Route: 059
     Dates: start: 20081101

REACTIONS (2)
  - BENIGN INTRACRANIAL HYPERTENSION [None]
  - WEIGHT INCREASED [None]
